FAERS Safety Report 19593218 (Version 1)
Quarter: 2021Q3

REPORT INFORMATION
  Report Type: Spontaneous
  Country: US (occurrence: US)
  Receive Date: 20210721
  Receipt Date: 20210721
  Transmission Date: 20211014
  Serious: Yes (Hospitalization)
  Sender: FDA-Public Use
  Company Number: None

PATIENT
  Age: 9 Month
  Sex: Female

DRUGS (6)
  1. VIGABATRIN 500?7050 MG/MG [Suspect]
     Active Substance: VIGABATRIN
     Indication: PRODUCT USED FOR UNKNOWN INDICATION
     Dosage: ?          OTHER DOSE:500 MG/MG, 750MG;?
     Route: 048
     Dates: start: 20210527
  2. CLOBAZAM. [Concomitant]
     Active Substance: CLOBAZAM
  3. LEVETIRACETA [Concomitant]
     Active Substance: LEVETIRACETAM
  4. VIMPAL [Concomitant]
  5. PHENOBARB [Concomitant]
     Active Substance: PHENOBARBITAL SODIUM
  6. TOPIRAMATE. [Concomitant]
     Active Substance: TOPIRAMATE

REACTIONS (1)
  - Rhinovirus infection [None]

NARRATIVE: CASE EVENT DATE: 202107
